FAERS Safety Report 6866438-8 (Version None)
Quarter: 2010Q2

REPORT INFORMATION
  Report Type: 
  Country: None (occurrence: None)
  Receive Date: 20100610
  Receipt Date: 20100401
  Transmission Date: 20101027
  Serious: Yes (Other)
  Sender: FDA-Public Use
  Company Number: 2010SP019495

PATIENT
  Age: 18 Year
  Sex: Male

DRUGS (1)
  1. SAPHRIS [Suspect]
     Indication: INTERMITTENT EXPLOSIVE DISORDER
     Dosage: 5 MG; SL
     Route: 060
     Dates: start: 20100107, end: 20100110

REACTIONS (1)
  - SWOLLEN TONGUE [None]
